FAERS Safety Report 9715714 (Version 1)
Quarter: 2013Q4

REPORT INFORMATION
  Report Type: Report from Study
  Country: US (occurrence: US)
  Receive Date: 20131127
  Receipt Date: 20131127
  Transmission Date: 20140711
  Serious: Yes (Other)
  Sender: FDA-Public Use
  Company Number: US-ROCHE-1307560

PATIENT
  Sex: Male
  Weight: 41.5 kg

DRUGS (5)
  1. NUTROPIN AQ [Suspect]
     Indication: GROWTH HORMONE DEFICIENCY
     Route: 058
     Dates: start: 201304
  2. MELATONIN [Concomitant]
     Dosage: QHS
     Route: 048
  3. RITALIN [Concomitant]
     Route: 048
  4. PRILOSEC [Concomitant]
     Route: 048
  5. ZOFRAN [Concomitant]
     Dosage: Q8HRS PRN
     Route: 048

REACTIONS (1)
  - Arthralgia [Unknown]
